FAERS Safety Report 14247029 (Version 2)
Quarter: 2017Q4

REPORT INFORMATION
  Report Type: Report from Study
  Country: DE (occurrence: DE)
  Receive Date: 20171204
  Receipt Date: 20171205
  Transmission Date: 20180321
  Serious: Yes (Other)
  Sender: FDA-Public Use
  Company Number: PHHY2017DE173671

PATIENT
  Sex: Male
  Weight: 93 kg

DRUGS (12)
  1. DECORTIN [Concomitant]
     Active Substance: PREDNISONE
     Dosage: 5 MG, QD
     Route: 048
     Dates: start: 2017, end: 20171010
  2. VELMETIA [Concomitant]
     Active Substance: METFORMIN\SITAGLIPTIN
     Indication: DIABETES MELLITUS
     Dosage: 2 DF, QD
     Route: 048
  3. DECORTIN [Concomitant]
     Active Substance: PREDNISONE
     Dosage: 20 MG, QD
     Route: 048
     Dates: start: 20171011, end: 20171014
  4. VIGANTOLETTEN [Concomitant]
     Active Substance: CHOLECALCIFEROL
     Indication: OSTEOPOROSIS PROPHYLAXIS
     Dosage: 1000 U, QD
     Route: 048
  5. METHOTREXATE. [Suspect]
     Active Substance: METHOTREXATE
     Indication: PSORIATIC ARTHROPATHY
     Dosage: 15 MG, QW
     Route: 058
     Dates: start: 201705, end: 20171116
  6. DECORTIN [Concomitant]
     Active Substance: PREDNISONE
     Indication: PSORIATIC ARTHROPATHY
     Dosage: 10 MG, QD
     Route: 048
     Dates: start: 201705, end: 2017
  7. TOUJEO [Concomitant]
     Active Substance: INSULIN GLARGINE
     Indication: DIABETES MELLITUS
     Dosage: 14 U, UNK (IN THE EVENING)
     Route: 058
  8. FOLCUR [Concomitant]
     Indication: PRODUCT USED FOR UNKNOWN INDICATION
     Dosage: 5 MG, QW
     Route: 048
     Dates: start: 201705, end: 20171116
  9. NOVORAPID [Concomitant]
     Active Substance: INSULIN ASPART
     Indication: DIABETES MELLITUS
     Dosage: UNK (BASED ON BLOOD SUGAR)
     Route: 065
  10. NEBIVOLOL. [Concomitant]
     Active Substance: NEBIVOLOL
     Indication: HYPERTENSION
     Dosage: 2.5 MG, QD
     Route: 048
  11. COSENTYX [Suspect]
     Active Substance: SECUKINUMAB
     Indication: PSORIATIC ARTHROPATHY
     Dosage: 150 MG, PER APPLICATION
     Route: 065
     Dates: start: 20170920
  12. DECORTIN [Concomitant]
     Active Substance: PREDNISONE
     Dosage: 5 MG, QD
     Route: 048
     Dates: start: 20171015

REACTIONS (3)
  - Abdominal discomfort [Not Recovered/Not Resolved]
  - Diarrhoea [Not Recovered/Not Resolved]
  - Psoriatic arthropathy [Not Recovered/Not Resolved]

NARRATIVE: CASE EVENT DATE: 201710
